FAERS Safety Report 20199421 (Version 2)
Quarter: 2022Q2

REPORT INFORMATION
  Report Type: Spontaneous
  Country: US (occurrence: US)
  Receive Date: 20211217
  Receipt Date: 20220429
  Transmission Date: 20220721
  Serious: Yes (Hospitalization)
  Sender: FDA-Public Use
  Company Number: US-GW PHARMA-202112USGW06240

PATIENT

DRUGS (3)
  1. EPIDIOLEX [Suspect]
     Active Substance: CANNABIDIOL
     Indication: Idiopathic generalised epilepsy
     Dosage: 600 MILLIGRAM
     Route: 048
     Dates: start: 202011
  2. EPIDIOLEX [Suspect]
     Active Substance: CANNABIDIOL
     Indication: Pain
     Dosage: 3 MILLILITER
     Route: 048
     Dates: start: 202011
  3. EPIDIOLEX [Suspect]
     Active Substance: CANNABIDIOL
     Indication: Severe myoclonic epilepsy of infancy

REACTIONS (1)
  - Brain operation [Unknown]

NARRATIVE: CASE EVENT DATE: 20210101
